FAERS Safety Report 23333332 (Version 1)
Quarter: 2023Q4

REPORT INFORMATION
  Report Type: Spontaneous
  Country: US (occurrence: US)
  Receive Date: 20231222
  Receipt Date: 20231222
  Transmission Date: 20240109
  Serious: No
  Sender: FDA-Public Use
  Company Number: US-CTI BIOPHARMA-2023US04153

PATIENT

DRUGS (6)
  1. VONJO [Suspect]
     Active Substance: PACRITINIB
     Indication: Product used for unknown indication
     Dosage: 200 MG, BID
     Route: 048
     Dates: start: 20230915, end: 20231009
  2. NORVASC [Concomitant]
     Active Substance: AMLODIPINE BESYLATE
     Dosage: 10 MG, QD
  3. LIPITOR [Concomitant]
     Active Substance: ATORVASTATIN CALCIUM
     Dosage: 20 MG, QD
  4. CAPTOPRIL [Concomitant]
     Active Substance: CAPTOPRIL
     Dosage: 40 MG, QD
  5. VITAMIN D2 [Concomitant]
     Active Substance: ERGOCALCIFEROL
     Dosage: 50 MICROGRAM, QD
  6. LEXAPRO [Concomitant]
     Active Substance: ESCITALOPRAM OXALATE
     Dosage: 5 MG, QD

REACTIONS (2)
  - Liver function test increased [Unknown]
  - Platelet count decreased [Unknown]

NARRATIVE: CASE EVENT DATE: 20231009
